FAERS Safety Report 6581167-6 (Version None)
Quarter: 2010Q1

REPORT INFORMATION
  Report Type: 
  Country: None (occurrence: None)
  Receive Date: 20100215
  Receipt Date: 20100202
  Transmission Date: 20100710
  Serious: Yes (Hospitalization)
  Sender: FDA-Public Use
  Company Number: ES-AMGEN-QUU390048

PATIENT
  Age: 59 Year
  Sex: Male
  Weight: 77.7 kg

DRUGS (18)
  1. NEULASTA [Suspect]
     Indication: CHEMOTHERAPY
     Route: 058
     Dates: start: 20100129
  2. CYCLOPHOSPHAMIDE [Concomitant]
     Route: 042
     Dates: start: 20100128
  3. VINCRISTINE [Concomitant]
     Route: 042
     Dates: start: 20100128
  4. DOXORUBICIN HCL [Concomitant]
     Dates: start: 20100128
  5. METHYLPREDNISOLONE [Concomitant]
     Route: 042
     Dates: start: 20100128
  6. OMEPRAZOLE [Concomitant]
     Route: 048
     Dates: start: 20100128
  7. PIPERACILLIN AND TAZOBACTAM [Concomitant]
     Route: 042
     Dates: start: 20100129
  8. ALLOPURINOL [Concomitant]
     Route: 048
     Dates: start: 20100128
  9. SODIUM BICARBONATE [Concomitant]
     Route: 048
     Dates: start: 20100128
  10. METOCLOPRAMIDE [Concomitant]
     Route: 042
     Dates: start: 20100128
  11. ONDANSETRON [Concomitant]
     Route: 042
     Dates: start: 20100128
  12. GLUCOSALINA [Concomitant]
     Route: 042
     Dates: start: 20100129
  13. POTASSIUM CHLORIDE [Concomitant]
     Route: 042
     Dates: start: 20100129
  14. FUROSEMIDE [Concomitant]
     Route: 042
     Dates: start: 20100128
  15. PREDNISONE [Concomitant]
     Route: 048
     Dates: start: 20100129
  16. PARACETAMOL [Concomitant]
     Route: 042
     Dates: start: 20100128
  17. ALBUTEROL [Concomitant]
     Route: 055
     Dates: start: 20100129
  18. IPRATROPIUM BROMIDE [Concomitant]
     Route: 055
     Dates: start: 20100129

REACTIONS (2)
  - ACCIDENTAL OVERDOSE [None]
  - NO ADVERSE EVENT [None]
